FAERS Safety Report 17798082 (Version 3)
Quarter: 2020Q3

REPORT INFORMATION
  Report Type: Report from Study
  Country: US (occurrence: US)
  Receive Date: 20200518
  Receipt Date: 20200807
  Transmission Date: 20201102
  Serious: No
  Sender: FDA-Public Use
  Company Number: NVSC2020US135035

PATIENT
  Sex: Male

DRUGS (4)
  1. TYLENOL [Concomitant]
     Active Substance: ACETAMINOPHEN
     Indication: PRODUCT USED FOR UNKNOWN INDICATION
     Dosage: UNK
     Route: 065
  2. COSENTYX [Suspect]
     Active Substance: SECUKINUMAB
     Dosage: 300 MG, OTHER (WEEKS 0, 1, 2, 3, AND 4. THEN ONCE EVERY 4 WEEKS THEREAFTER)
     Route: 058
  3. COSENTYX [Suspect]
     Active Substance: SECUKINUMAB
     Dosage: 300 MG (INJECT 2 PENS (300 MG) SUBCUTANEOUSLY ONCE EVERY 4 WEEKS)
     Route: 058
  4. COSENTYX [Suspect]
     Active Substance: SECUKINUMAB
     Indication: PSORIASIS
     Dosage: 300 MG (WEEKS 0, 1, 2, 3, AND 4, THEN INJECT 2 PENS (300MG) ONCE EVERY 4 WEEKS THEREAFTER)
     Route: 058
     Dates: start: 20200501

REACTIONS (5)
  - Hyperhidrosis [Unknown]
  - Pruritus [Unknown]
  - Psoriasis [Recovering/Resolving]
  - Diarrhoea [Unknown]
  - Migraine [Unknown]
